FAERS Safety Report 9140815 (Version 1)
Quarter: 2013Q1

REPORT INFORMATION
  Report Type: Spontaneous
  Country: US (occurrence: US)
  Receive Date: 20130305
  Receipt Date: 20130305
  Transmission Date: 20140127
  Serious: No
  Sender: FDA-Public Use
  Company Number: US-009507513-1303USA001779

PATIENT
  Age: 42 Year
  Sex: Female

DRUGS (1)
  1. AFRIN [Suspect]
     Indication: PRODUCT USED FOR UNKNOWN INDICATION
     Dosage: UNK, UNKNOWN
     Route: 045

REACTIONS (4)
  - Throat irritation [Unknown]
  - Cough [Recovered/Resolved]
  - Sinus disorder [Unknown]
  - Dry mouth [Recovered/Resolved]
